FAERS Safety Report 18542973 (Version 2)
Quarter: 2025Q2

REPORT INFORMATION
  Report Type: Report from Study
  Country: GB (occurrence: GB)
  Receive Date: 20201125
  Receipt Date: 20250627
  Transmission Date: 20250717
  Serious: Yes (Other)
  Sender: AUROBINDO
  Company Number: GB-SUN PHARMACEUTICAL INDUSTRIES LTD-2020R1-267596

PATIENT
  Age: 26 Year
  Sex: Female

DRUGS (5)
  1. ABACAVIR [Suspect]
     Active Substance: ABACAVIR
     Indication: Perinatal HIV infection
     Route: 065
  2. LAMIVUDINE [Suspect]
     Active Substance: LAMIVUDINE
     Indication: Perinatal HIV infection
     Route: 065
  3. DOLUTEGRAVIR [Suspect]
     Active Substance: DOLUTEGRAVIR
     Indication: Perinatal HIV infection
     Route: 065
  4. ESTROGENS [Concomitant]
     Active Substance: ESTROGENS
     Indication: Hypogonadism female
     Route: 062
  5. NORETHINDRONE [Concomitant]
     Active Substance: NORETHINDRONE
     Indication: Hypogonadism female
     Route: 062

REACTIONS (2)
  - Amenorrhoea [Unknown]
  - Pubertal failure [Not Recovered/Not Resolved]
